FAERS Safety Report 14813915 (Version 1)
Quarter: 2018Q2

REPORT INFORMATION
  Report Type: Spontaneous
  Country: ES (occurrence: ES)
  Receive Date: 20180426
  Receipt Date: 20180426
  Transmission Date: 20180711
  Serious: Yes (Death, Hospitalization)
  Sender: FDA-Public Use
  Company Number: ES-AUROBINDO-AUR-APL-2018-021589

PATIENT
  Age: 44 Year
  Sex: Female

DRUGS (2)
  1. PARACETAMOL [Suspect]
     Active Substance: ACETAMINOPHEN
     Indication: INTENTIONAL OVERDOSE
     Dosage: 7 GRAM, TOTAL
     Route: 048
     Dates: start: 20170411, end: 20170411
  2. LORATADIN [Concomitant]
     Active Substance: LORATADINE
     Indication: INTENTIONAL OVERDOSE
     Dosage: 1 TOTAL
     Route: 048
     Dates: start: 20170411, end: 20170411

REACTIONS (2)
  - Hepatitis [Fatal]
  - Intentional overdose [Fatal]

NARRATIVE: CASE EVENT DATE: 20170411
